FAERS Safety Report 8412702-0 (Version None)
Quarter: 2012Q2

REPORT INFORMATION
  Report Type: 
  Country: None (occurrence: None)
  Receive Date: 20120531
  Receipt Date: 20120531
  Transmission Date: 20120825
  Serious: Yes (Hospitalization)
  Sender: FDA-Public Use
  Company Number: None

PATIENT
  Sex: Male
  Weight: 67.3 kg

DRUGS (2)
  1. TAXOTERE [Suspect]
     Dosage: 140 MG
     Dates: end: 20090109
  2. CISPLATIN [Suspect]
     Dosage: 140 MG
     Dates: end: 20090109

REACTIONS (10)
  - NAUSEA [None]
  - TACHYCARDIA [None]
  - FEBRILE NEUTROPENIA [None]
  - ATRIAL FIBRILLATION [None]
  - GASTROINTESTINAL TOXICITY [None]
  - BLOOD THYROID STIMULATING HORMONE DECREASED [None]
  - HYPOMAGNESAEMIA [None]
  - DEHYDRATION [None]
  - DIARRHOEA [None]
  - ABDOMINAL PAIN LOWER [None]
